FAERS Safety Report 9372079 (Version 1)
Quarter: 2013Q2

REPORT INFORMATION
  Report Type: Spontaneous
  Country: US (occurrence: US)
  Receive Date: 20130627
  Receipt Date: 20130627
  Transmission Date: 20140414
  Serious: No
  Sender: FDA-Public Use
  Company Number: US-PFIZER INC-2013189195

PATIENT
  Age: 51 Year
  Sex: Female
  Weight: 47.6 kg

DRUGS (2)
  1. ESTRING [Suspect]
     Indication: OESTROGEN REPLACEMENT THERAPY
     Dosage: UNK
     Dates: start: 1998, end: 2013
  2. SYNTHROID [Concomitant]
     Indication: THYROIDECTOMY
     Dosage: 88 UG, 1X/DAY

REACTIONS (1)
  - Pain [Not Recovered/Not Resolved]
